FAERS Safety Report 5300062-3 (Version None)
Quarter: 2007Q2

REPORT INFORMATION
  Report Type: 
  Country: None (occurrence: None)
  Receive Date: 20070410
  Receipt Date: 20070327
  Transmission Date: 20071010
  Serious: Yes (Hospitalization, Disabling)
  Sender: FDA-Public Use
  Company Number: TPG2007A00256

PATIENT
  Age: 90 Year
  Sex: Female

DRUGS (3)
  1. ACTOS [Suspect]
     Indication: DIABETES MELLITUS
     Dosage: 30 MG (30 MG, 1 IN 1 D); 15 MG (15 MG, 1 IN 1 D)
     Route: 048
     Dates: start: 20060830
  2. DIGITOXIN TAB [Concomitant]
  3. DIURETICS (DIURETICS) [Concomitant]

REACTIONS (4)
  - CONDITION AGGRAVATED [None]
  - HYPOCHROMIC ANAEMIA [None]
  - LOWER GASTROINTESTINAL HAEMORRHAGE [None]
  - RENAL FAILURE ACUTE [None]
